FAERS Safety Report 17794764 (Version 1)
Quarter: 2020Q2

REPORT INFORMATION
  Report Type: Spontaneous
  Country: US (occurrence: US)
  Receive Date: 20200515
  Receipt Date: 20200515
  Transmission Date: 20200714
  Serious: No
  Sender: FDA-Public Use
  Company Number: US-ASTRAZENECA-2020SE60697

PATIENT
  Sex: Female

DRUGS (4)
  1. NEXIUM [Suspect]
     Active Substance: ESOMEPRAZOLE MAGNESIUM
     Indication: DYSPEPSIA
     Dosage: 20.0MG UNKNOWN
     Route: 048
  2. NEXIUM [Suspect]
     Active Substance: ESOMEPRAZOLE MAGNESIUM
     Indication: DYSPEPSIA
     Dosage: 40.0MG UNKNOWN
     Route: 048
  3. TUMS [Concomitant]
     Active Substance: CALCIUM CARBONATE
  4. PEPCID AC [Concomitant]
     Active Substance: FAMOTIDINE

REACTIONS (8)
  - Constipation [Unknown]
  - Abdominal pain upper [Unknown]
  - Malaise [Unknown]
  - Abdominal discomfort [Unknown]
  - Diarrhoea [Unknown]
  - Dyspepsia [Unknown]
  - Drug ineffective [Unknown]
  - Intentional product misuse [Unknown]
